FAERS Safety Report 16651066 (Version 1)
Quarter: 2019Q3

REPORT INFORMATION
  Report Type: Other
  Country: CA (occurrence: CA)
  Receive Date: 20190731
  Receipt Date: 20190731
  Transmission Date: 20191004
  Serious: Yes (Other)
  Sender: FDA-Public Use
  Company Number: CA-CHANGZHOU PHARMACEUTICAL FACTORY-2071527

PATIENT
  Age: 72 Year
  Sex: Male

DRUGS (6)
  1. COLCHICINE. [Interacting]
     Active Substance: COLCHICINE
  2. IRBESARTAN. [Concomitant]
     Active Substance: IRBESARTAN
  3. ROSUVASTATIN CALCIUM. [Suspect]
     Active Substance: ROSUVASTATIN CALCIUM
     Indication: PRODUCT USED FOR UNKNOWN INDICATION
  4. ALLOPURINOL. [Concomitant]
     Active Substance: ALLOPURINOL
  5. ACARBOSE. [Concomitant]
     Active Substance: ACARBOSE
  6. REPAGLINIDE. [Concomitant]
     Active Substance: REPAGLINIDE

REACTIONS (3)
  - Drug interaction [Recovered/Resolved]
  - Rhabdomyolysis [Recovered/Resolved]
  - Myopathy [Recovered/Resolved]
